FAERS Safety Report 4721904-6 (Version None)
Quarter: 2005Q3

REPORT INFORMATION
  Report Type: 
  Country: None (occurrence: None)
  Receive Date: 20050722
  Receipt Date: 20050713
  Transmission Date: 20060218
  Serious: Yes (Hospitalization)
  Sender: FDA-Public Use
  Company Number: US-JNJFOC-20050702445

PATIENT
  Age: 22 Year
  Sex: Male

DRUGS (3)
  1. RISPERDAL [Suspect]
  2. SIMVASTATIN [Interacting]
  3. CLONAZEPAM [Concomitant]
     Indication: ANXIETY

REACTIONS (4)
  - COMPARTMENT SYNDROME [None]
  - DRUG INTERACTION [None]
  - MUSCLE NECROSIS [None]
  - RHABDOMYOLYSIS [None]
